FAERS Safety Report 8509582-1 (Version None)
Quarter: 2012Q3

REPORT INFORMATION
  Report Type: 
  Country: None (occurrence: None)
  Receive Date: 20120713
  Receipt Date: 20120706
  Transmission Date: 20120928
  Serious: Yes (Hospitalization, Other)
  Sender: FDA-Public Use
  Company Number: CA-JNJFOC-20120606893

PATIENT
  Sex: Female
  Weight: 84 kg

DRUGS (10)
  1. MAGNESIUM SULFATE [Concomitant]
     Route: 065
  2. REMICADE [Suspect]
     Indication: RHEUMATOID ARTHRITIS
     Route: 042
     Dates: start: 20070601
  3. CALCIUM [Concomitant]
     Route: 065
  4. LOVAZA [Concomitant]
     Route: 065
  5. FOLIC ACID [Concomitant]
     Route: 048
  6. METHOTREXATE [Concomitant]
     Route: 058
  7. ZOPICLONE [Concomitant]
     Route: 065
  8. ASCORBIC ACID [Concomitant]
     Route: 065
  9. RABEPRAZOLE SODIUM [Concomitant]
     Route: 048
  10. VITAMIN D [Concomitant]
     Route: 065

REACTIONS (2)
  - SPINAL COLUMN STENOSIS [None]
  - AORTIC ANEURYSM [None]
